FAERS Safety Report 16242274 (Version 1)
Quarter: 2019Q2

REPORT INFORMATION
  Report Type: Report from Study
  Country: ES (occurrence: ES)
  Receive Date: 20190426
  Receipt Date: 20190426
  Transmission Date: 20190711
  Serious: Yes (Hospitalization)
  Sender: FDA-Public Use
  Company Number: ES-ROCHE-2171750

PATIENT
  Age: 73 Year
  Sex: Female
  Weight: 64.7 kg

DRUGS (14)
  1. RO6874281 (FAP IL2V MAB) [Suspect]
     Active Substance: RO-6874281
     Indication: RENAL CELL CARCINOMA
     Dosage: DATE OF LAST DOSE PRIOR TO FLUID OVERLOAD (SECOND OCCURRENCE): 27/AUG/2018 (15 MG)
     Route: 042
     Dates: start: 20180813
  2. APIXABAN [Concomitant]
     Active Substance: APIXABAN
     Route: 065
     Dates: start: 20180813
  3. PARACETAMOL [Concomitant]
     Active Substance: ACETAMINOPHEN
     Dosage: DOSE: 16 R
     Route: 065
     Dates: start: 20180814
  4. FOSFOMYCINE [Concomitant]
     Active Substance: FOSFOMYCIN
     Route: 065
     Dates: start: 20180814
  5. LEVOTHYROXINE. [Concomitant]
     Active Substance: LEVOTHYROXINE
     Route: 065
     Dates: start: 20180417
  6. ATEZOLIZUMAB. [Suspect]
     Active Substance: ATEZOLIZUMAB
     Indication: RENAL CELL CARCINOMA
     Dosage: DATE OF LAST DOSE PRIOR TO FLUID OVERLOAD (SECOND OCCURRENCE): 27/AUG/2018
     Route: 041
     Dates: start: 20180813
  7. LACTULOSA [Concomitant]
     Active Substance: LACTULOSE
     Route: 065
     Dates: start: 20180618
  8. MIRTAZAPINE. [Concomitant]
     Active Substance: MIRTAZAPINE
     Route: 065
     Dates: start: 20180427
  9. ACETILCISTEINA [Concomitant]
     Active Substance: ACETYLCYSTEINE
     Route: 065
     Dates: start: 20180625
  10. NITROGLYCERIN. [Concomitant]
     Active Substance: NITROGLYCERIN
     Route: 065
     Dates: start: 20180607
  11. PUNTUAL [Concomitant]
     Dosage: 24 GTS
     Route: 065
     Dates: start: 20180618
  12. PANTOPRAZOL [PANTOPRAZOLE] [Concomitant]
     Active Substance: PANTOPRAZOLE
     Route: 065
     Dates: start: 20180417
  13. HIDROALTESONA [Concomitant]
     Active Substance: HYDROCORTISONE
     Route: 065
     Dates: start: 20180414
  14. ATORVASTATIN [Concomitant]
     Active Substance: ATORVASTATIN
     Route: 065
     Dates: start: 20180424

REACTIONS (2)
  - Fluid overload [Recovering/Resolving]
  - Fluid overload [Recovered/Resolved]

NARRATIVE: CASE EVENT DATE: 20180814
